FAERS Safety Report 5021853-2 (Version None)
Quarter: 2006Q2

REPORT INFORMATION
  Report Type: 
  Country: None (occurrence: None)
  Receive Date: 20060609
  Receipt Date: 20060328
  Transmission Date: 20061013
  Serious: Yes (Death)
  Sender: FDA-Public Use
  Company Number: 2006UW05451

PATIENT
  Age: 20452 Day
  Sex: Male
  Weight: 85 kg

DRUGS (4)
  1. CRESTOR [Suspect]
     Indication: BLOOD CHOLESTEROL INCREASED
     Route: 048
     Dates: start: 20060315
  2. LEVITRA [Concomitant]
     Indication: ERECTILE DYSFUNCTION
     Dates: start: 20060314
  3. VIAGRA [Concomitant]
     Indication: ERECTILE DYSFUNCTION
  4. ASPIRIN [Concomitant]
     Indication: PROPHYLAXIS
     Route: 048

REACTIONS (1)
  - RESPIRATORY ARREST [None]
